FAERS Safety Report 4822764-5 (Version None)
Quarter: 2005Q4

REPORT INFORMATION
  Report Type: 
  Country: None (occurrence: None)
  Receive Date: 20051104
  Receipt Date: 20051026
  Transmission Date: 20060501
  Serious: Yes (Other)
  Sender: FDA-Public Use
  Company Number: 2005090368

PATIENT
  Age: 81 Year
  Sex: Female

DRUGS (3)
  1. LIPITOR [Suspect]
     Indication: HYPERLIPIDAEMIA
     Dosage: 10 MG (10 MG, 1 IN 1 D)
  2. ALTACE [Suspect]
     Indication: HYPERTENSION
     Dosage: 2.5 MG (1 IN 1 D), ORAL
     Route: 048
     Dates: start: 20040101
  3. ZIAC [Concomitant]

REACTIONS (7)
  - FEELING ABNORMAL [None]
  - HYPERTENSION [None]
  - HYPOAESTHESIA [None]
  - MOVEMENT DISORDER [None]
  - MUSCLE SPASMS [None]
  - PAIN IN EXTREMITY [None]
  - SENSATION OF HEAVINESS [None]
